FAERS Safety Report 4445260-6 (Version None)
Quarter: 2004Q3

REPORT INFORMATION
  Report Type: 
  Country: None (occurrence: None)
  Receive Date: 20040907
  Receipt Date: 20040820
  Transmission Date: 20050211
  Serious: Yes (Hospitalization)
  Sender: FDA-Public Use
  Company Number: 04P-056-0264125-00

PATIENT
  Age: 77 Year
  Sex: Female

DRUGS (4)
  1. DEPAKOTE [Suspect]
     Indication: BIPOLAR DISORDER
     Dosage: SEE IMAGE
     Route: 048
     Dates: start: 20031020, end: 20040501
  2. DEPAKOTE [Suspect]
     Indication: BIPOLAR DISORDER
     Dosage: SEE IMAGE
     Route: 048
     Dates: start: 20040501, end: 20040528
  3. CLOPIDOGREL BISULFATE [Suspect]
     Indication: ARRHYTHMIA
     Dosage: 75 MG, 1 IN 1 D, PER ORAL
     Route: 048
     Dates: end: 20040528
  4. LEVOTHYROXINE SODIUM [Concomitant]

REACTIONS (6)
  - CYTOLYTIC HEPATITIS [None]
  - DEPRESSION [None]
  - GENERAL PHYSICAL HEALTH DETERIORATION [None]
  - PETECHIAE [None]
  - THROMBOCYTOPENIA [None]
  - TRANSAMINASES INCREASED [None]
